FAERS Safety Report 8319142-3 (Version None)
Quarter: 2012Q2

REPORT INFORMATION
  Report Type: 
  Country: None (occurrence: None)
  Receive Date: 20120427
  Receipt Date: 20120420
  Transmission Date: 20120825
  Serious: Yes (Disabling)
  Sender: FDA-Public Use
  Company Number: US-MERCK-1204USA02856

PATIENT
  Sex: Female

DRUGS (2)
  1. FOSAMAX [Suspect]
     Route: 048
     Dates: start: 20060101, end: 20070101
  2. FOSAMAX [Suspect]
     Route: 048
     Dates: start: 20060101, end: 20070101

REACTIONS (2)
  - FEMUR FRACTURE [None]
  - BONE DISORDER [None]
